FAERS Safety Report 22283752 (Version 3)
Quarter: 2023Q4

REPORT INFORMATION
  Report Type: Spontaneous
  Country: FR (occurrence: FR)
  Receive Date: 20230504
  Receipt Date: 20231004
  Transmission Date: 20240110
  Serious: Yes (Hospitalization)
  Sender: FDA-Public Use
  Company Number: FR-SA-SAC20230416000044

PATIENT
  Age: 51 Year
  Sex: Female
  Weight: 64 kg

DRUGS (12)
  1. EPIRUBICIN [Suspect]
     Active Substance: EPIRUBICIN
     Indication: Triple negative breast cancer
     Dosage: 156 MILLIGRAM, QOW, BIWEEKLY
     Route: 042
  2. EPIRUBICIN [Suspect]
     Active Substance: EPIRUBICIN
     Dosage: 90 MILLIGRAM/SQ. METER, QOW, BIWEEKLY
     Route: 042
     Dates: start: 20190909
  3. EPIRUBICIN [Suspect]
     Active Substance: EPIRUBICIN
     Dosage: 154 MILLIGRAM, QOW, BIWEEKLY
     Route: 042
     Dates: start: 20190923
  4. PACLITAXEL [Suspect]
     Active Substance: PACLITAXEL
     Indication: Triple negative breast cancer
     Dosage: 80 MILLIGRAM/SQ. METER, QW
     Route: 042
     Dates: start: 20190617
  5. PACLITAXEL [Suspect]
     Active Substance: PACLITAXEL
     Dosage: 138 MILLIGRAM, QW
     Route: 042
     Dates: start: 20190902
  6. LENOGRASTIM [Suspect]
     Active Substance: LENOGRASTIM
     Indication: Triple negative breast cancer
     Dosage: UNK
     Route: 058
     Dates: start: 20191018
  7. LENOGRASTIM [Suspect]
     Active Substance: LENOGRASTIM
     Dosage: UNK
     Route: 058
     Dates: start: 20191108
  8. LENOGRASTIM [Suspect]
     Active Substance: LENOGRASTIM
     Dosage: UNK
     Route: 058
     Dates: start: 20190927
  9. LENOGRASTIM [Suspect]
     Active Substance: LENOGRASTIM
     Dosage: 34 MICROGRAM, Q2W
     Route: 058
     Dates: start: 20190914, end: 20190919
  10. CYCLOPHOSPHAMIDE [Suspect]
     Active Substance: CYCLOPHOSPHAMIDE
     Indication: Triple negative breast cancer
     Dosage: 1000 MG
     Route: 042
     Dates: start: 20190923
  11. CYCLOPHOSPHAMIDE [Suspect]
     Active Substance: CYCLOPHOSPHAMIDE
     Dosage: 600 MG/M2, QOW
     Route: 042
     Dates: start: 20190909
  12. CYCLOPHOSPHAMIDE [Suspect]
     Active Substance: CYCLOPHOSPHAMIDE
     Dosage: 1000 MG
     Route: 042

REACTIONS (4)
  - Leukopenia [Recovered/Resolved]
  - Fatigue [Recovered/Resolved]
  - Malaise [Recovered/Resolved]
  - Neutropenia [Recovering/Resolving]

NARRATIVE: CASE EVENT DATE: 20190916
